FAERS Safety Report 17693742 (Version 2)
Quarter: 2020Q2

REPORT INFORMATION
  Report Type: Spontaneous
  Country: CH (occurrence: CH)
  Receive Date: 20200422
  Receipt Date: 20200615
  Transmission Date: 20200714
  Serious: Yes (Other)
  Sender: FDA-Public Use
  Company Number: CH-PFIZER INC-2020155844

PATIENT
  Age: 35 Year
  Sex: Male

DRUGS (1)
  1. NEURONTIN [Suspect]
     Active Substance: GABAPENTIN
     Indication: RESTLESS LEGS SYNDROME
     Dosage: 600 MG, 2X/DAY

REACTIONS (4)
  - Epilepsy [Unknown]
  - Product use in unapproved indication [Unknown]
  - Off label use [Unknown]
  - Therapy cessation [Unknown]
